FAERS Safety Report 18698569 (Version 1)
Quarter: 2021Q1

REPORT INFORMATION
  Report Type: Spontaneous
  Country: US (occurrence: US)
  Receive Date: 20210105
  Receipt Date: 20210105
  Transmission Date: 20210419
  Serious: Yes (Other)
  Sender: FDA-Public Use
  Company Number: US-LUPIN PHARMACEUTICALS INC.-2020-11282

PATIENT
  Age: 64 Year
  Sex: Male

DRUGS (4)
  1. AZITHROMYCIN ANHYDROUS. [Suspect]
     Active Substance: AZITHROMYCIN ANHYDROUS
     Indication: COVID-19
     Dosage: UNK
     Route: 065
  2. HYDROXYCHLOROQUINE [Suspect]
     Active Substance: HYDROXYCHLOROQUINE
     Indication: COVID-19
     Dosage: UNK
     Route: 065
  3. ZINC SULFATE. [Suspect]
     Active Substance: ZINC SULFATE
     Indication: COVID-19
     Dosage: UNK
     Route: 065
  4. N?ACETYLCYSTEINE [Concomitant]
     Active Substance: ACETYLCYSTEINE
     Indication: HEPATITIS ACUTE
     Dosage: UNK (LOADING DOSE FOLLOWED BY MAINTENANCE DOSES)
     Route: 065

REACTIONS (1)
  - Off label use [Unknown]
